FAERS Safety Report 9980868 (Version 1)
Quarter: 2014Q1

REPORT INFORMATION
  Report Type: Spontaneous
  Country: US (occurrence: US)
  Receive Date: 20140307
  Receipt Date: 20140307
  Transmission Date: 20141002
  Serious: No
  Sender: FDA-Public Use
  Company Number: US-GLAXOSMITHKLINE-A1008027A

PATIENT
  Age: 9 Year
  Sex: Male

DRUGS (2)
  1. ROPINIROLE [Suspect]
     Indication: AFFECTIVE DISORDER
     Dosage: 1MG PER DAY
     Route: 048
     Dates: start: 20121020, end: 20121208
  2. VYVANSE [Concomitant]

REACTIONS (6)
  - Anger [Not Recovered/Not Resolved]
  - Myalgia [Not Recovered/Not Resolved]
  - Hypersomnia [Not Recovered/Not Resolved]
  - Pain [Not Recovered/Not Resolved]
  - Weight decreased [Not Recovered/Not Resolved]
  - Drug dispensing error [Unknown]
